FAERS Safety Report 10046805 (Version 2)
Quarter: 2014Q1

REPORT INFORMATION
  Report Type: Report from Study
  Country: US (occurrence: US)
  Receive Date: 20140331
  Receipt Date: 20140331
  Transmission Date: 20141002
  Serious: Yes (Other)
  Sender: FDA-Public Use
  Company Number: PHEH2013US022078

PATIENT
  Sex: Female

DRUGS (6)
  1. DIOVAN [Suspect]
     Indication: HYPERTENSION
     Dosage: 320 MG, QD
     Route: 048
  2. VITAMIN D [Suspect]
     Dosage: UNK UKN, QD
  3. BYDUREON [Suspect]
     Dosage: 2 MG, QW
     Route: 065
  4. PREMARIN [Suspect]
     Indication: HOT FLUSH
     Dosage: UNK UKN, UNK
  5. VICTOZA [Suspect]
     Dosage: 1.8 MG, DAILY
  6. AZOPT [Concomitant]
     Dosage: UNK UKN, UNK
     Route: 065

REACTIONS (4)
  - Glaucoma [Unknown]
  - Hot flush [Unknown]
  - Eye disorder [Unknown]
  - Therapeutic response unexpected [Unknown]
